FAERS Safety Report 5761944-1 (Version None)
Quarter: 2008Q2

REPORT INFORMATION
  Report Type: 
  Country: None (occurrence: None)
  Receive Date: 20080603
  Receipt Date: 20080521
  Transmission Date: 20081010
  Serious: No
  Sender: FDA-Public Use
  Company Number: TPA2008A00759

PATIENT
  Age: 48 Year
  Sex: Male
  Weight: 122.4712 kg

DRUGS (7)
  1. ROZEREM [Suspect]
     Indication: INSOMNIA
     Dosage: 8 MG, QHS, PER ORAL : 8 MG, 2 TABLETS QHS, PER ORAL
     Route: 048
     Dates: start: 20080507, end: 20080519
  2. ROZEREM [Suspect]
     Indication: INSOMNIA
     Dosage: 8 MG, QHS, PER ORAL : 8 MG, 2 TABLETS QHS, PER ORAL
     Route: 048
     Dates: start: 20080520
  3. TRAZODONE HCL [Suspect]
     Indication: INSOMNIA
     Dosage: 15 MG, QHS, PER ORAL
     Route: 048
     Dates: start: 20080501, end: 20080519
  4. AMBIEN [Suspect]
  5. CELEXA [Concomitant]
  6. ALLOPURINOL [Concomitant]
  7. LOTENSIN [Concomitant]

REACTIONS (7)
  - ANGER [None]
  - DRUG INEFFECTIVE [None]
  - DRUG WITHDRAWAL SYNDROME [None]
  - HANGOVER [None]
  - MOOD SWINGS [None]
  - PARANOIA [None]
  - SOMNOLENCE [None]
